FAERS Safety Report 22690710 (Version 4)
Quarter: 2025Q2

REPORT INFORMATION
  Report Type: Spontaneous
  Country: AT (occurrence: AT)
  Receive Date: 20230711
  Receipt Date: 20250502
  Transmission Date: 20250717
  Serious: Yes (Hospitalization)
  Sender: CHEPLAPHARM
  Company Number: AT-ROCHE-3226138

PATIENT
  Age: 63 Year
  Sex: Female

DRUGS (64)
  1. CAPECITABINE [Suspect]
     Active Substance: CAPECITABINE
     Indication: HER2 positive breast cancer
     Dosage: FREQUENCY: OTHER?FREQUENCY: OTHER MOST RECENT DOSE PRIOR TO THE EVENT: 19/JAN/2021?D1-D14, Q21D
     Route: 048
     Dates: start: 20201031, end: 20201120
  2. CAPECITABINE [Suspect]
     Active Substance: CAPECITABINE
     Indication: HER2 positive breast cancer
     Dosage: MOST RECENT DOSE PRIOR TO THE EVENT: 19/JAN/2021 ?D1-14. Q21D?AMOUNT PER ADMINISTRATION WAS CHAN...
     Route: 048
     Dates: start: 20201121, end: 20201218
  3. CAPECITABINE [Suspect]
     Active Substance: CAPECITABINE
     Indication: HER2 positive breast cancer
     Dosage: MOST RECENT DOSE PRIOR TO THE EVENT: 19/JAN/2021 ?D1-14. Q21D
     Route: 048
     Dates: start: 20210119, end: 20210522
  4. OLANZAPINE [Suspect]
     Active Substance: OLANZAPINE
     Indication: Nausea
     Route: 048
     Dates: start: 20210721
  5. DOXORUBICIN [Suspect]
     Active Substance: DOXORUBICIN
     Indication: HER2 positive breast cancer
     Route: 042
     Dates: start: 20220727, end: 20220818
  6. PERTUZUMAB [Suspect]
     Active Substance: PERTUZUMAB
     Indication: HER2 positive breast cancer
     Route: 042
     Dates: start: 20190315, end: 20190315
  7. PERTUZUMAB [Suspect]
     Active Substance: PERTUZUMAB
     Indication: HER2 positive breast cancer
     Dosage: MOST RECENT DOSE PRIOR TO AE 03/JAN/2020
     Route: 042
     Dates: start: 20190315
  8. PERTUZUMAB [Suspect]
     Active Substance: PERTUZUMAB
     Indication: HER2 positive breast cancer
     Route: 042
     Dates: start: 20190403, end: 20200103
  9. PERTUZUMAB [Suspect]
     Active Substance: PERTUZUMAB
     Indication: HER2 positive breast cancer
     Route: 042
     Dates: start: 20200103
  10. ADO-TRASTUZUMAB EMTANSINE [Suspect]
     Active Substance: ADO-TRASTUZUMAB EMTANSINE
     Indication: HER2 positive breast cancer
     Dosage: MOST RECENT DOSE PRIOR TO AE 26/AUG/2020
     Route: 042
     Dates: start: 20200129, end: 20200826
  11. ADO-TRASTUZUMAB EMTANSINE [Suspect]
     Active Substance: ADO-TRASTUZUMAB EMTANSINE
     Indication: HER2 positive breast cancer
     Route: 042
     Dates: start: 20200826
  12. TRASTUZUMAB [Suspect]
     Active Substance: TRASTUZUMAB
     Indication: HER2 positive breast cancer
     Dosage: SOLUTION FOR INFUSION INSTEAD OF SOLUTION FOR INJECTION?INTRAVENOUS USE INSTEAD OF SUBCUTANEOUS USE
     Route: 042
     Dates: start: 20190315, end: 20190315
  13. TRASTUZUMAB [Suspect]
     Active Substance: TRASTUZUMAB
     Indication: HER2 positive breast cancer
     Dosage: MOST RECENT DOSE PRIOR TO AE 21/OCT/2020 IV BOLUS
     Route: 042
     Dates: start: 20190315, end: 20200103
  14. TRASTUZUMAB [Suspect]
     Active Substance: TRASTUZUMAB
     Indication: HER2 positive breast cancer
     Dosage: MOST RECENT DOSE PRIOR TO AE 21/OCT/2020?SOLUTION FOR INFUSION INSTEAD OF SOLUTION FOR INJECTION...
     Route: 042
     Dates: start: 20190403, end: 20200103
  15. TRASTUZUMAB [Suspect]
     Active Substance: TRASTUZUMAB
     Indication: HER2 positive breast cancer
     Dosage: MOST RECENT DOSE PRIOR TO AE
     Route: 058
     Dates: start: 20201021, end: 20210429
  16. TRASTUZUMAB [Suspect]
     Active Substance: TRASTUZUMAB
     Indication: HER2 positive breast cancer
     Route: 042
     Dates: start: 20220727, end: 20220818
  17. VINORELBINE [Suspect]
     Active Substance: VINORELBINE TARTRATE
     Indication: HER2 positive breast cancer
     Route: 042
     Dates: start: 20190315, end: 20190625
  18. VINORELBINE [Suspect]
     Active Substance: VINORELBINE TARTRATE
     Indication: HER2 positive breast cancer
     Dosage: AMOUNT PER ADMINISTRATION WAS CHANGED FROM 28 TO 58 MG.
     Route: 042
     Dates: start: 20190918, end: 20200103
  19. PHESGO [Suspect]
     Active Substance: HYALURONIDASE-ZZXF\PERTUZUMAB\TRASTUZUMAB
     Indication: HER2 positive breast cancer
     Route: 058
     Dates: start: 20220727, end: 20220818
  20. ENHERTU [Suspect]
     Active Substance: FAM-TRASTUZUMAB DERUXTECAN-NXKI
     Indication: HER2 positive breast cancer
     Route: 042
     Dates: start: 20210628, end: 20210628
  21. ENHERTU [Suspect]
     Active Substance: FAM-TRASTUZUMAB DERUXTECAN-NXKI
     Indication: HER2 positive breast cancer
     Route: 042
     Dates: start: 20210721, end: 20210811
  22. ENHERTU [Suspect]
     Active Substance: FAM-TRASTUZUMAB DERUXTECAN-NXKI
     Indication: HER2 positive breast cancer
     Route: 042
     Dates: start: 20210901, end: 20211228
  23. ENHERTU [Suspect]
     Active Substance: FAM-TRASTUZUMAB DERUXTECAN-NXKI
     Indication: HER2 positive breast cancer
     Dosage: START OF THERAPY DATE: 18-JAN-2022 INSTEAD OF 17-JAN-2022
     Route: 042
     Dates: start: 20220118, end: 20220209
  24. ENHERTU [Suspect]
     Active Substance: FAM-TRASTUZUMAB DERUXTECAN-NXKI
     Indication: HER2 positive breast cancer
     Route: 042
     Dates: start: 20220302, end: 20220512
  25. TUCATINIB [Suspect]
     Active Substance: TUCATINIB
     Indication: HER2 positive breast cancer
     Dosage: AMOUNT PER ADMINISTRATION WAS CHANGED FROM 30 TO 300 MG.
     Route: 048
     Dates: start: 20201120, end: 20210108
  26. TUCATINIB [Suspect]
     Active Substance: TUCATINIB
     Indication: HER2 positive breast cancer
     Route: 048
     Dates: start: 20210108, end: 20210428
  27. TUCATINIB [Suspect]
     Active Substance: TUCATINIB
     Indication: HER2 positive breast cancer
     Route: 048
     Dates: start: 20210509, end: 20210528
  28. SACITUZUMAB GOVITECAN [Suspect]
     Active Substance: SACITUZUMAB GOVITECAN
     Indication: HER2 positive breast cancer
     Route: 042
     Dates: start: 20221207, end: 20230105
  29. ERIBULIN MESYLATE [Suspect]
     Active Substance: ERIBULIN MESYLATE
     Indication: HER2 positive breast cancer
     Dosage: D1+D8. Q21D
     Route: 042
     Dates: start: 20230209, end: 20230322
  30. HERCEPTIN [Suspect]
     Active Substance: TRASTUZUMAB
     Route: 058
     Dates: start: 20201021, end: 20210429
  31. Paspertin [Concomitant]
     Indication: Nausea
     Route: 048
     Dates: start: 20210708
  32. POLYETHYLENE GLYCOL 3350\POTASSIUM CHLORIDE\SODIUM BICARBONATE\SODIUM [Concomitant]
     Active Substance: POLYETHYLENE GLYCOL 3350\POTASSIUM CHLORIDE\SODIUM BICARBONATE\SODIUM CHLORIDE
     Indication: Prophylaxis
     Route: 048
     Dates: start: 20210722
  33. ESOMEPRAZOLE [Concomitant]
     Active Substance: ESOMEPRAZOLE
     Indication: Prophylaxis
     Dosage: ONGOING = CHECKED
     Route: 048
     Dates: start: 20190726
  34. ESOMEPRAZOLE [Concomitant]
     Active Substance: ESOMEPRAZOLE
     Indication: Abdominal pain upper
     Dosage: ONGOING = CHECKED
     Route: 048
     Dates: start: 20190726
  35. ESOMEPRAZOLE [Concomitant]
     Active Substance: ESOMEPRAZOLE
     Indication: Prophylaxis
     Dates: start: 20211215
  36. ESOMEPRAZOLE [Concomitant]
     Active Substance: ESOMEPRAZOLE
     Indication: Abdominal pain upper
     Dates: start: 20211215
  37. DEXAMETHASONE [Concomitant]
     Active Substance: DEXAMETHASONE
     Indication: Prophylaxis
     Route: 048
     Dates: start: 20210628, end: 20220514
  38. DEXAMETHASONE [Concomitant]
     Active Substance: DEXAMETHASONE
     Indication: Prophylaxis
     Route: 048
     Dates: start: 20221207, end: 20230105
  39. DEXAMETHASONE [Concomitant]
     Active Substance: DEXAMETHASONE
     Indication: Prophylaxis
     Route: 048
     Dates: start: 20221208, end: 20230107
  40. DEXAMETHASONE [Concomitant]
     Active Substance: DEXAMETHASONE
     Indication: Prophylaxis
     Route: 048
     Dates: start: 20230209
  41. APREPITANT [Concomitant]
     Active Substance: APREPITANT
     Indication: Product used for unknown indication
     Route: 048
     Dates: start: 20210721, end: 20220512
  42. APREPITANT [Concomitant]
     Active Substance: APREPITANT
     Indication: Product used for unknown indication
     Route: 048
     Dates: start: 20210721
  43. APREPITANT [Concomitant]
     Active Substance: APREPITANT
     Indication: Product used for unknown indication
     Route: 048
     Dates: start: 20210722, end: 20220514
  44. APREPITANT [Concomitant]
     Active Substance: APREPITANT
     Indication: Product used for unknown indication
     Route: 048
     Dates: start: 20210722
  45. NADROPARIN CALCIUM [Concomitant]
     Active Substance: NADROPARIN CALCIUM
     Indication: Prophylaxis
     Dosage: ONGOING = CHECKED ?0.30 ML (MILLILITER; CM3)
     Route: 058
     Dates: start: 20190208
  46. ZOFRAN [Concomitant]
     Active Substance: ONDANSETRON HYDROCHLORIDE
     Indication: Prophylaxis
     Route: 048
     Dates: start: 20190315
  47. ZOFRAN [Concomitant]
     Active Substance: ONDANSETRON HYDROCHLORIDE
     Indication: Prophylaxis
     Route: 048
     Dates: start: 20221207, end: 20230105
  48. LOPERAMIDE HYDROCHLORIDE [Concomitant]
     Active Substance: LOPERAMIDE HYDROCHLORIDE
     Indication: Prophylaxis
     Route: 048
     Dates: start: 20190315
  49. SUCRALFATE [Concomitant]
     Active Substance: SUCRALFATE
     Indication: HER2 positive breast cancer
     Route: 048
     Dates: start: 20190403
  50. SUCRALFATE [Concomitant]
     Active Substance: SUCRALFATE
     Indication: Prophylaxis
     Route: 048
     Dates: start: 20190403
  51. EMEND [Concomitant]
     Active Substance: APREPITANT
     Indication: Nausea
     Route: 048
     Dates: start: 20210721, end: 20220512
  52. EMEND [Concomitant]
     Active Substance: APREPITANT
     Indication: Nausea
     Route: 048
     Dates: start: 20210721
  53. EMEND [Concomitant]
     Active Substance: APREPITANT
     Indication: Nausea
     Route: 048
     Dates: start: 20210722, end: 20220514
  54. EMEND [Concomitant]
     Active Substance: APREPITANT
     Indication: Nausea
     Route: 048
     Dates: start: 20210722
  55. AMOXICILLIN\CLAVULANATE POTASSIUM [Concomitant]
     Active Substance: AMOXICILLIN\CLAVULANATE POTASSIUM
     Indication: Product used for unknown indication
     Dosage: 16 OCT 2019 } EXANTHEMA AREA OF CLAVICULA; CUMUL. DOSE TO 1ST REACTION: 18G
     Route: 048
     Dates: start: 20191030, end: 20191107
  56. AMOXICILLIN\CLAVULANATE POTASSIUM [Concomitant]
     Active Substance: AMOXICILLIN\CLAVULANATE POTASSIUM
     Indication: Product used for unknown indication
     Route: 048
     Dates: start: 20230215, end: 20230225
  57. DIPHENHYDRAMINE [Concomitant]
     Active Substance: DIPHENHYDRAMINE
     Indication: Prophylaxis
     Route: 048
     Dates: start: 20221207, end: 20230105
  58. ONDANSETRON [Concomitant]
     Active Substance: ONDANSETRON
     Indication: Prophylaxis
     Route: 048
     Dates: start: 20190315
  59. ONDANSETRON [Concomitant]
     Active Substance: ONDANSETRON
     Indication: Prophylaxis
     Route: 048
     Dates: start: 20221207, end: 20230105
  60. ONDANSETRON [Concomitant]
     Active Substance: ONDANSETRON
     Indication: Prophylaxis
     Route: 048
     Dates: start: 20221208, end: 20230107
  61. ONDANSETRON [Concomitant]
     Active Substance: ONDANSETRON
     Indication: Prophylaxis
     Route: 048
     Dates: start: 20230209
  62. ACETAMINOPHEN [Concomitant]
     Active Substance: ACETAMINOPHEN
     Indication: Prophylaxis
     Dates: start: 20221207, end: 20230105
  63. PREDNISOLONE SODIUM SUCCINATE [Concomitant]
     Active Substance: PREDNISOLONE SODIUM SUCCINATE
     Indication: Prophylaxis
     Route: 042
     Dates: start: 20220727, end: 20220915
  64. NADROPARIN CALCIUM [Concomitant]
     Active Substance: NADROPARIN CALCIUM
     Dosage: ONGOING = CHECKED?0.30 ML (MILLILITER; CM3)
     Route: 058
     Dates: start: 20190208

REACTIONS (3)
  - Pneumothorax [Recovered/Resolved with Sequelae]
  - Pneumonia [Not Recovered/Not Resolved]
  - Off label use [Unknown]

NARRATIVE: CASE EVENT DATE: 20210721
